FAERS Safety Report 7010996-X (Version None)
Quarter: 2010Q3

REPORT INFORMATION
  Report Type: 
  Country: None (occurrence: None)
  Receive Date: 20100923
  Receipt Date: 20090226
  Transmission Date: 20110219
  Serious: No
  Sender: FDA-Public Use
  Company Number: US-WYE-H05065208

PATIENT
  Sex: Female
  Weight: 66.47 kg

DRUGS (6)
  1. EFFEXOR XR [Suspect]
     Indication: FIBROMYALGIA
     Route: 048
     Dates: start: 20080229
  2. EFFEXOR XR [Suspect]
     Route: 048
  3. NOVOLOG [Concomitant]
  4. LANTUS [Concomitant]
  5. PINDOLOL [Concomitant]
  6. ZYRTEC [Concomitant]

REACTIONS (7)
  - ANTISOCIAL BEHAVIOUR [None]
  - APATHY [None]
  - DEPRESSION [None]
  - DISTURBANCE IN ATTENTION [None]
  - HYPERHIDROSIS [None]
  - THINKING ABNORMAL [None]
  - UNEVALUABLE EVENT [None]
